FAERS Safety Report 7898292-X (Version None)
Quarter: 2011Q4

REPORT INFORMATION
  Report Type: 
  Country: None (occurrence: None)
  Receive Date: 20111107
  Receipt Date: 20111031
  Transmission Date: 20120403
  Serious: Yes (Hospitalization)
  Sender: FDA-Public Use
  Company Number: CHPA2011US14993

PATIENT
  Age: 14 Year
  Sex: Female

DRUGS (1)
  1. EX-LAX MAX STR LAX PILLS SENNA [Suspect]
     Indication: CONSTIPATION
     Dosage: 1 DF, ONCE/SINGLE
     Route: 048
     Dates: start: 20111026, end: 20111026

REACTIONS (6)
  - UNDERDOSE [None]
  - RENAL CYST [None]
  - OVARIAN CYST [None]
  - ABDOMINAL PAIN [None]
  - HEPATIC CYST [None]
  - PANCREATITIS [None]
